FAERS Safety Report 4950046-X (Version None)
Quarter: 2006Q1

REPORT INFORMATION
  Report Type: 
  Country: None (occurrence: None)
  Receive Date: 20060320
  Receipt Date: 20060320
  Transmission Date: 20060701
  Serious: No
  Sender: FDA-Public Use
  Company Number: None

PATIENT
  Age: 50 Year
  Sex: Female
  Weight: 71.2147 kg

DRUGS (1)
  1. CIPROFLOXACIN   500 MG       CIPROFLOXACIN HCL  TAB  500 MG [Suspect]
     Indication: SINUSITIS
     Dosage: 500 MG   2 X DAY  PO
     Route: 048
     Dates: start: 20060307, end: 20060313

REACTIONS (10)
  - ARTHRALGIA [None]
  - COUGH [None]
  - FATIGUE [None]
  - INSOMNIA [None]
  - JOINT SWELLING [None]
  - NAUSEA [None]
  - OEDEMA PERIPHERAL [None]
  - RESTLESSNESS [None]
  - URTICARIA [None]
  - VOMITING [None]
